FAERS Safety Report 10020871 (Version 1)
Quarter: 2014Q1

REPORT INFORMATION
  Report Type: Spontaneous
  Country: US (occurrence: None)
  Receive Date: 20140318
  Receipt Date: 20140318
  Transmission Date: 20141002
  Serious: Yes (Death)
  Sender: FDA-Public Use
  Company Number: None

PATIENT
  Age: 60 Year
  Sex: Male
  Weight: 81.65 kg

DRUGS (1)
  1. ANDROGEL [Suspect]
     Dates: start: 20130405, end: 20130906

REACTIONS (2)
  - Myocardial infarction [None]
  - Cardiac arrest [None]
